FAERS Safety Report 18997226 (Version 4)
Quarter: 2022Q2

REPORT INFORMATION
  Report Type: Report from Study
  Country: TW (occurrence: None)
  Receive Date: 20210311
  Receipt Date: 20220512
  Transmission Date: 20220721
  Serious: Yes (Other)
  Sender: FDA-Public Use
  Company Number: TW-MERCK HEALTHCARE KGAA-9223595

PATIENT
  Age: 14 Year
  Sex: Male

DRUGS (3)
  1. SAIZEN [Suspect]
     Active Substance: SOMATROPIN
     Indication: Short stature
     Route: 058
     Dates: start: 20190908, end: 20210303
  2. SAIZEN [Suspect]
     Active Substance: SOMATROPIN
     Indication: Growth hormone deficiency
     Route: 058
     Dates: start: 20220508, end: 20220509
  3. BIO-CAL [Concomitant]
     Indication: Product used for unknown indication
     Dosage: 1 # QD

REACTIONS (5)
  - Necrosis [Recovering/Resolving]
  - Skin discolouration [Recovering/Resolving]
  - Joint swelling [Unknown]
  - Oedema peripheral [Recovering/Resolving]
  - Off label use [Unknown]

NARRATIVE: CASE EVENT DATE: 20220509
